FAERS Safety Report 9418798 (Version 2)
Quarter: 2013Q4

REPORT INFORMATION
  Report Type: Report from Study
  Country: US (occurrence: US)
  Receive Date: 20130725
  Receipt Date: 20131112
  Transmission Date: 20140711
  Serious: Yes (Hospitalization)
  Sender: FDA-Public Use
  Company Number: US-JNJFOC-20130711802

PATIENT
  Age: 87 Year
  Sex: Male

DRUGS (1)
  1. ZYTIGA [Suspect]
     Indication: PROSTATE CANCER
     Dosage: STRENGTH OF EACH TABLET: 250 MG
     Route: 048
     Dates: start: 20130624, end: 20130710

REACTIONS (2)
  - Myocardial infarction [Recovered/Resolved]
  - Drug ineffective [Recovered/Resolved]
